FAERS Safety Report 5893048-1 (Version None)
Quarter: 2008Q3

REPORT INFORMATION
  Report Type: 
  Country: None (occurrence: None)
  Receive Date: 20080923
  Receipt Date: 20071026
  Transmission Date: 20090109
  Serious: No
  Sender: FDA-Public Use
  Company Number: US-ASTRAZENECA-2006UW25842

PATIENT
  Age: 32 Year
  Sex: Female
  Weight: 74.4 kg

DRUGS (5)
  1. SEROQUEL [Suspect]
     Indication: DEPRESSION
     Route: 048
  2. SEROQUEL [Suspect]
     Route: 048
  3. METFORMIN HCL [Concomitant]
  4. GEMFIBROZIL [Concomitant]
  5. WELLBUTRIN [Concomitant]

REACTIONS (3)
  - ARTHRALGIA [None]
  - GENITAL DISCHARGE [None]
  - ORAL MUCOSAL EXFOLIATION [None]
